FAERS Safety Report 8443748-4 (Version None)
Quarter: 2012Q2

REPORT INFORMATION
  Report Type: 
  Country: None (occurrence: None)
  Receive Date: 20120618
  Receipt Date: 20120611
  Transmission Date: 20120825
  Serious: Yes (Death, Life-Threatening, Hospitalization, Other)
  Sender: FDA-Public Use
  Company Number: DK-ELI_LILLY_AND_COMPANY-DK201206003587

PATIENT

DRUGS (4)
  1. FLUOXETINE HYDROCHLORIDE [Suspect]
     Dosage: UNK, UNKNOWN
     Route: 048
  2. FLUOXETINE HYDROCHLORIDE [Suspect]
     Indication: DEPRESSION
     Dosage: UNK, UNKNOWN
     Route: 064
  3. FLUOXETINE HYDROCHLORIDE [Suspect]
     Dosage: UNK, UNKNOWN
     Route: 064
  4. FLUOXETINE HYDROCHLORIDE [Suspect]
     Dosage: UNK, UNKNOWN
     Route: 048

REACTIONS (10)
  - PREMATURE LABOUR [None]
  - NEONATAL ANOXIA [None]
  - JAUNDICE NEONATAL [None]
  - FOETAL EXPOSURE DURING PREGNANCY [None]
  - EXPOSURE DURING BREAST FEEDING [None]
  - CEREBRAL DISORDER [None]
  - PNEUMONIA [None]
  - FEEDING DISORDER NEONATAL [None]
  - MUSCLE TWITCHING [None]
  - PERICARDIAL EFFUSION [None]
